FAERS Safety Report 16567173 (Version 10)
Quarter: 2020Q1

REPORT INFORMATION
  Report Type: Spontaneous
  Country: JP (occurrence: JP)
  Receive Date: 20190712
  Receipt Date: 20200221
  Transmission Date: 20200409
  Serious: Yes (Other)
  Sender: FDA-Public Use
  Company Number: JP-ALLERGAN-1928431US

PATIENT
  Sex: Male

DRUGS (10)
  1. TEGRETOL [Suspect]
     Active Substance: CARBAMAZEPINE
     Indication: MANIA
     Dosage: 800 MG, QD
     Route: 048
  2. TEGRETOL [Suspect]
     Active Substance: CARBAMAZEPINE
     Dosage: 200 MG IN THE EVENING AND 400 MG AT BEDTIME
     Route: 048
  3. DEPAS [ETIZOLAM] [Suspect]
     Active Substance: ETIZOLAM
     Indication: HYPERVENTILATION
     Dosage: 1 MG
     Route: 048
  4. URSODEOXYCHOLIC ACID - BP [Suspect]
     Active Substance: URSODIOL
     Indication: GASTROOESOPHAGEAL REFLUX DISEASE
     Dosage: UNK
     Route: 048
  5. ESCITALOPRAM OXALATE - BP [Suspect]
     Active Substance: ESCITALOPRAM OXALATE
     Indication: DEPRESSION
     Dosage: 20 MG, QD
     Route: 048
  6. GOODMIN [Suspect]
     Active Substance: BROTIZOLAM
     Indication: PRODUCT USED FOR UNKNOWN INDICATION
     Dosage: 0.25 MG
     Route: 048
  7. TEGRETOL [Suspect]
     Active Substance: CARBAMAZEPINE
     Dosage: 400 MG, QD
     Route: 048
  8. ESCITALOPRAM OXALATE - BP [Suspect]
     Active Substance: ESCITALOPRAM OXALATE
     Dosage: 10 MG, QD FOR 5-6 YEARS
     Route: 048
  9. BROTIZOLAM [Suspect]
     Active Substance: BROTIZOLAM
     Indication: PRODUCT USED FOR UNKNOWN INDICATION
     Dosage: 0.25 MG, QD
     Route: 048
  10. DEPAS [ETIZOLAM] [Suspect]
     Active Substance: ETIZOLAM
     Dosage: 0.5 MG
     Route: 048

REACTIONS (21)
  - Neuralgia [Unknown]
  - Anxiety disorder [Unknown]
  - Feeling abnormal [Unknown]
  - Therapeutic product effect incomplete [Unknown]
  - Anxiety [Unknown]
  - Dysgeusia [Unknown]
  - Nausea [Unknown]
  - Dyspepsia [Unknown]
  - Decreased activity [Unknown]
  - Mania [Unknown]
  - Autonomic nervous system imbalance [Unknown]
  - Somnolence [Unknown]
  - Palpitations [Unknown]
  - Depression [Unknown]
  - Intentional product misuse [Unknown]
  - Fall [Unknown]
  - Malaise [Unknown]
  - Insomnia [Unknown]
  - Dizziness [Unknown]
  - Off label use [Unknown]
  - Drug ineffective [Unknown]
